FAERS Safety Report 5235768-8 (Version None)
Quarter: 2007Q1

REPORT INFORMATION
  Report Type: 
  Country: None (occurrence: None)
  Receive Date: 20070212
  Receipt Date: 20070205
  Transmission Date: 20070707
  Serious: Yes (Hospitalization)
  Sender: FDA-Public Use
  Company Number: JP-AVENTIS-200710008JP

PATIENT
  Age: 58 Year
  Sex: Female

DRUGS (9)
  1. ARAVA [Suspect]
     Indication: RHEUMATOID ARTHRITIS
     Route: 048
     Dates: start: 20030918, end: 20070104
  2. BOUIOUGITO [Concomitant]
     Route: 048
  3. LASIX [Concomitant]
     Route: 048
  4. PREDONINE                          /00016201/ [Concomitant]
     Indication: RHEUMATOID ARTHRITIS
     Route: 048
  5. BREDININ [Concomitant]
     Indication: RHEUMATOID ARTHRITIS
     Route: 048
  6. PRAVASTATIN SODIUM [Concomitant]
     Route: 048
  7. LOXONIN                            /00890701/ [Concomitant]
     Indication: RHEUMATOID ARTHRITIS
     Route: 048
  8. OMEPRAZON [Concomitant]
     Route: 048
  9. PREDOHAN [Concomitant]
     Indication: RHEUMATOID ARTHRITIS
     Route: 048

REACTIONS (2)
  - IMPAIRED HEALING [None]
  - NAIL DISORDER [None]
